FAERS Safety Report 7212371-1 (Version None)
Quarter: 2011Q1

REPORT INFORMATION
  Report Type: 
  Country: None (occurrence: None)
  Receive Date: 20110106
  Receipt Date: 20110104
  Transmission Date: 20110831
  Serious: Yes (Hospitalization)
  Sender: FDA-Public Use
  Company Number: BR-BRISTOL-MYERS SQUIBB COMPANY-15471139

PATIENT
  Age: 53 Year
  Sex: Female
  Weight: 52 kg

DRUGS (7)
  1. CISPLATIN [Suspect]
     Indication: NON-SMALL CELL LUNG CANCER
     Dosage: ON DAY 1 TO 8 LAST DOSE PRIOR TO EVENT 7DEC10
     Route: 042
     Dates: start: 20101103
  2. DEXAMETHASONE [Concomitant]
     Dates: start: 20101103
  3. PARACETAMOL [Concomitant]
     Dates: start: 20101109
  4. OMEPRAZOLE [Concomitant]
     Dates: start: 20101210
  5. METOCLOPRAMIDE [Concomitant]
     Dates: start: 20101103
  6. ETOPOSIDE [Suspect]
     Indication: NON-SMALL CELL LUNG CANCER
     Dosage: ON DAY 1 TO 5  LAST DOSE PRIOR TO EVENT 4DEC10
     Route: 042
     Dates: start: 20101103
  7. ALUMINUM HYDROXIDE GEL [Concomitant]
     Dates: start: 20101122

REACTIONS (2)
  - DEHYDRATION [None]
  - OESOPHAGITIS [None]
